FAERS Safety Report 24706447 (Version 3)
Quarter: 2025Q1

REPORT INFORMATION
  Report Type: Report from Study
  Country: DE (occurrence: DE)
  Receive Date: 20241206
  Receipt Date: 20250224
  Transmission Date: 20250409
  Serious: Yes (Hospitalization, Other)
  Sender: BAXTER
  Company Number: DE-BAXTER-2024BAX028965

PATIENT
  Age: 56 Year
  Sex: Male

DRUGS (5)
  1. OLIMEL E [Suspect]
     Active Substance: AMINO ACIDS\DEXTROSE\ELECTROLYTES NOS\SOYBEAN OIL
     Indication: Parenteral nutrition
     Route: 042
     Dates: start: 20241106, end: 20250114
  2. CERNEVIT [Suspect]
     Active Substance: VITAMINS
     Indication: Parenteral nutrition
     Route: 042
     Dates: start: 20241106, end: 20250114
  3. ELECTROLYTES NOS\MINERALS [Suspect]
     Active Substance: ELECTROLYTES NOS\MINERALS
     Indication: Parenteral nutrition
     Route: 042
     Dates: start: 20241106, end: 20250116
  4. ELECTROLYTES NOS\MINERALS [Suspect]
     Active Substance: ELECTROLYTES NOS\MINERALS
     Route: 042
     Dates: start: 20250129
  5. UNSPECIFIED INGREDIENT [Suspect]
     Active Substance: UNSPECIFIED INGREDIENT
     Route: 065

REACTIONS (4)
  - Liver disorder [Recovered/Resolved]
  - Ileus [Recovered/Resolved]
  - Weight decreased [Unknown]
  - Abscess [Unknown]

NARRATIVE: CASE EVENT DATE: 20241125
